FAERS Safety Report 10465467 (Version 1)
Quarter: 2014Q3

REPORT INFORMATION
  Report Type: Spontaneous
  Country: JP (occurrence: JP)
  Receive Date: 20140919
  Receipt Date: 20140919
  Transmission Date: 20150326
  Serious: Yes (Other)
  Sender: FDA-Public Use
  Company Number: JP-BAUSCH-BL-2014-005142

PATIENT
  Age: 64 Year
  Sex: Male

DRUGS (1)
  1. BRONUCK OPHTHALMIC SOLUTION 0.1% [Suspect]
     Active Substance: BROMFENAC SODIUM
     Indication: PRODUCT USED FOR UNKNOWN INDICATION
     Route: 047

REACTIONS (1)
  - Punctate keratitis [Recovered/Resolved]

NARRATIVE: CASE EVENT DATE: 20131129
